FAERS Safety Report 22204227 (Version 2)
Quarter: 2023Q2

REPORT INFORMATION
  Report Type: Other
  Country: FR (occurrence: FR)
  Receive Date: 20230412
  Receipt Date: 20230524
  Transmission Date: 20230722
  Serious: Yes (Death, Hospitalization, Other)
  Sender: FDA-Public Use
  Company Number: None

PATIENT

DRUGS (2)
  1. TAFASITAMAB [Suspect]
     Active Substance: TAFASITAMAB
     Indication: B-cell lymphoma recurrent
     Dosage: 12 MILLIGRAM/KILOGRAM, CYCLICAL
     Route: 042
     Dates: start: 20221213, end: 20230221
  2. LENALIDOMIDE [Suspect]
     Active Substance: LENALIDOMIDE
     Indication: B-cell lymphoma recurrent
     Dosage: 25 MILLIGRAM
     Route: 048
     Dates: start: 20221213

REACTIONS (3)
  - Disease progression [Fatal]
  - Pancytopenia [Not Recovered/Not Resolved]
  - Drug ineffective [Not Recovered/Not Resolved]

NARRATIVE: CASE EVENT DATE: 20230223
